FAERS Safety Report 26165630 (Version 1)
Quarter: 2025Q4

REPORT INFORMATION
  Report Type: Report from Study
  Country: CH (occurrence: CH)
  Receive Date: 20251216
  Receipt Date: 20251216
  Transmission Date: 20260117
  Serious: Yes (Other)
  Sender: MYLAN
  Company Number: CH-MYLANLABS-2025M1107610

PATIENT

DRUGS (4)
  1. PREGABALIN [Suspect]
     Active Substance: PREGABALIN
     Indication: Product used for unknown indication
     Dosage: 10 MILLIGRAM/KILOGRAM
     Route: 061
  2. PREGABALIN [Suspect]
     Active Substance: PREGABALIN
     Dosage: 10 MILLIGRAM/KILOGRAM
     Route: 048
  3. PREGABALIN [Suspect]
     Active Substance: PREGABALIN
     Dosage: 10 MILLIGRAM/KILOGRAM
     Route: 048
  4. PREGABALIN [Suspect]
     Active Substance: PREGABALIN
     Dosage: 10 MILLIGRAM/KILOGRAM
     Route: 061

REACTIONS (3)
  - Overdose [Unknown]
  - Sopor [Unknown]
  - Off label use [Unknown]
